FAERS Safety Report 4498569-4 (Version None)
Quarter: 2004Q4

REPORT INFORMATION
  Report Type: 
  Country: None (occurrence: None)
  Receive Date: 20041108
  Receipt Date: 20041027
  Transmission Date: 20050328
  Serious: No
  Sender: FDA-Public Use
  Company Number: 2004UW22338

PATIENT
  Age: 70 Year
  Sex: Female
  Weight: 65.7 kg

DRUGS (4)
  1. NEXIUM [Suspect]
     Indication: GASTROOESOPHAGEAL REFLUX DISEASE
  2. PRILOSEC [Concomitant]
  3. AMARYL [Concomitant]
  4. GLUCOPHAGE [Concomitant]

REACTIONS (1)
  - PNEUMONIA [None]
